FAERS Safety Report 10161955 (Version 1)
Quarter: 2014Q2

REPORT INFORMATION
  Report Type: Spontaneous
  Country: US (occurrence: None)
  Receive Date: 20140507
  Receipt Date: 20140507
  Transmission Date: 20141212
  Serious: Yes (Hospitalization)
  Sender: FDA-Public Use
  Company Number: UTC-047985

PATIENT
  Age: 50 Year
  Sex: Female
  Weight: 81.65 kg

DRUGS (2)
  1. REMODULIN (5 MILLIGRAM/MILLILITERS, INJECTION FOR INFUSION) (TREPROSTINIL SODIUM) [Suspect]
     Indication: COR PULMONALE CHRONIC
     Dosage: 37.44 UG/KG (0.026 UG/KG, 1 IN 1 MIN), SUBSCUTANEOUS
     Route: 058
     Dates: start: 20120203
  2. WARFARIN (WARFARIN) (UNKNOWN) [Concomitant]

REACTIONS (2)
  - Headache [None]
  - Adverse drug reaction [None]
